FAERS Safety Report 9827165 (Version 2)
Quarter: 2014Q2

REPORT INFORMATION
  Report Type: Spontaneous
  Country: US (occurrence: US)
  Receive Date: 20140117
  Receipt Date: 20140424
  Transmission Date: 20141212
  Serious: No
  Sender: FDA-Public Use
  Company Number: US-009507513-1401USA006350

PATIENT
  Sex: Female

DRUGS (1)
  1. DR. SCHOLL^S CALLUS REMOVERS [Suspect]
     Indication: PRODUCT USED FOR UNKNOWN INDICATION
     Dosage: UNK, UNKNOWN
     Route: 061
     Dates: end: 201309

REACTIONS (4)
  - Burning sensation [Not Recovered/Not Resolved]
  - Thermal burn [Not Recovered/Not Resolved]
  - Wrong technique in drug usage process [Unknown]
  - Drug effect decreased [Unknown]
